FAERS Safety Report 7214904-8 (Version None)
Quarter: 2011Q1

REPORT INFORMATION
  Report Type: 
  Country: None (occurrence: None)
  Receive Date: 20110107
  Receipt Date: 20100518
  Transmission Date: 20110831
  Serious: No
  Sender: FDA-Public Use
  Company Number: A0857723A

PATIENT
  Sex: Female
  Weight: 63.6 kg

DRUGS (1)
  1. LOVAZA [Suspect]
     Dosage: 4U PER DAY
     Route: 048
     Dates: start: 20100301, end: 20100301

REACTIONS (1)
  - RASH [None]
